FAERS Safety Report 5909209-9 (Version None)
Quarter: 2008Q4

REPORT INFORMATION
  Report Type: 
  Country: None (occurrence: None)
  Receive Date: 20081006
  Receipt Date: 20080929
  Transmission Date: 20090506
  Serious: Yes (Hospitalization)
  Sender: FDA-Public Use
  Company Number: PHHY2008DE23155

PATIENT
  Sex: Female

DRUGS (1)
  1. EXFORGE [Suspect]
     Dosage: 1 DF, QD
     Dates: start: 20080922, end: 20080923

REACTIONS (1)
  - DIVERTICULUM INTESTINAL HAEMORRHAGIC [None]
